FAERS Safety Report 5298948-1 (Version None)
Quarter: 2007Q2

REPORT INFORMATION
  Report Type: 
  Country: None (occurrence: None)
  Receive Date: 20070417
  Receipt Date: 20070404
  Transmission Date: 20071010
  Serious: Yes (Hospitalization)
  Sender: FDA-Public Use
  Company Number: US-AMGEN-US218383

PATIENT
  Sex: Female

DRUGS (17)
  1. PROCRIT [Suspect]
     Indication: ANAEMIA
     Route: 058
     Dates: start: 20060801
  2. FOLATE SODIUM [Suspect]
  3. HYDRALAZINE HCL [Concomitant]
     Route: 065
  4. CLARINEX [Concomitant]
     Route: 065
  5. ASPIRIN [Concomitant]
     Route: 065
  6. FUROSEMIDE [Concomitant]
  7. ALTACE [Concomitant]
     Route: 065
  8. PROTONIX [Concomitant]
  9. DIGITEK [Concomitant]
     Route: 065
  10. LEVOTHYROXINE SODIUM [Concomitant]
     Route: 065
  11. ZETIA [Concomitant]
  12. ZOLOFT [Concomitant]
     Route: 065
  13. TAGAMET [Concomitant]
     Route: 065
  14. NOVOLIN 70/30 [Concomitant]
     Route: 065
  15. FLOVENT [Concomitant]
     Route: 055
  16. ALBUTEROL [Concomitant]
     Route: 055
  17. FLONASE [Concomitant]

REACTIONS (2)
  - HIP FRACTURE [None]
  - RASH ERYTHEMATOUS [None]
